FAERS Safety Report 6399612-8 (Version None)
Quarter: 2009Q4

REPORT INFORMATION
  Report Type: 
  Country: None (occurrence: None)
  Receive Date: 20091014
  Receipt Date: 20091002
  Transmission Date: 20100525
  Serious: Yes (Hospitalization)
  Sender: FDA-Public Use
  Company Number: AT-ASTRAZENECA-2009SE18002

PATIENT
  Age: 42 Year
  Sex: Female
  Weight: 60 kg

DRUGS (7)
  1. SEROQUEL [Suspect]
     Route: 048
     Dates: start: 20090505, end: 20090528
  2. CITALOPRAM HYDROBROMIDE [Suspect]
  3. EFFEXOR XR [Suspect]
  4. LAMICTAL [Suspect]
  5. RISPERDAL [Suspect]
     Dates: start: 20090414, end: 20090521
  6. TEMESTA [Suspect]
     Dates: start: 20090408
  7. NOZINAN [Suspect]
     Dates: start: 20090516, end: 20090516

REACTIONS (1)
  - ILEUS PARALYTIC [None]
